FAERS Safety Report 9648111 (Version 2)
Quarter: 2013Q4

REPORT INFORMATION
  Report Type: Report from Study
  Country: US (occurrence: US)
  Receive Date: 20131028
  Receipt Date: 20131028
  Transmission Date: 20140711
  Serious: Yes (Hospitalization)
  Sender: FDA-Public Use
  Company Number: PHEH2013US016371

PATIENT
  Sex: Female
  Weight: 53.97 kg

DRUGS (7)
  1. GILENYA [Suspect]
     Indication: MULTIPLE SCLEROSIS
     Dosage: 0.5 MG, QD
     Route: 048
     Dates: start: 20130719
  2. METHOTREXATE [Concomitant]
     Dosage: 2.5 MG, UNK
  3. BACLOFEN [Concomitant]
     Dosage: 10 MG, UNK
  4. ZANAFLEX [Concomitant]
     Dosage: 2 MG, UNK
  5. CHLORDIAZEPOXIDE WITH CLIDINUM BROMIDE [Concomitant]
  6. GRAPE SEED EXTRACT ^NATURAL FACTORS^ [Concomitant]
     Dosage: 50 MG, UNK
  7. MULTI VITA BETS WITH FLUORIDE [Concomitant]

REACTIONS (16)
  - Chest pain [Recovering/Resolving]
  - Menstruation delayed [Unknown]
  - Memory impairment [Unknown]
  - Facial pain [Unknown]
  - Fatigue [Recovering/Resolving]
  - Tremor [Not Recovered/Not Resolved]
  - Muscle spasms [Unknown]
  - Somnolence [Not Recovered/Not Resolved]
  - Decreased appetite [Unknown]
  - Hypotension [Unknown]
  - Dizziness postural [Recovered/Resolved]
  - Fungal infection [Unknown]
  - Dyspnoea [Unknown]
  - Headache [Recovered/Resolved]
  - Weight decreased [Unknown]
  - Drug ineffective [Unknown]
